FAERS Safety Report 24797304 (Version 2)
Quarter: 2025Q1

REPORT INFORMATION
  Report Type: Report from Study
  Country: BE (occurrence: BE)
  Receive Date: 20250102
  Receipt Date: 20250130
  Transmission Date: 20250409
  Serious: Yes (Hospitalization)
  Sender: CSL BEHRING
  Company Number: BE-BEH-2024190232

PATIENT
  Sex: Male

DRUGS (2)
  1. HIZENTRA [Suspect]
     Active Substance: HUMAN IMMUNOGLOBULIN G
     Indication: Primary immunodeficiency syndrome
     Dosage: 8 G, QW(8G - 40 ML)
     Route: 058
  2. HIZENTRA [Suspect]
     Active Substance: HUMAN IMMUNOGLOBULIN G
     Indication: Secondary immunodeficiency
     Dosage: 8 G, QW(8G - 40 ML)
     Route: 058

REACTIONS (1)
  - Palliative care [Unknown]
